FAERS Safety Report 9327982 (Version 1)
Quarter: 2013Q2

REPORT INFORMATION
  Report Type: Spontaneous
  Country: US (occurrence: US)
  Receive Date: 20130604
  Receipt Date: 20130604
  Transmission Date: 20140414
  Serious: Yes (Other)
  Sender: FDA-Public Use
  Company Number: US-SANOFI-AVENTIS-2012SA043678

PATIENT
  Age: 68 Year
  Sex: Female
  Weight: 71.82 kg

DRUGS (17)
  1. LANTUS [Suspect]
     Indication: TYPE 2 DIABETES MELLITUS
     Dosage: DOSE:75 UNIT(S)
     Route: 058
     Dates: start: 2005
  2. SOLOSTAR [Suspect]
     Indication: TYPE 2 DIABETES MELLITUS
     Dates: start: 2005
  3. NOVOLOG [Concomitant]
  4. VICTOZA [Concomitant]
     Dosage: DOSE:1.8 UNIT(S)
  5. BUDESONIDE/FORMOTEROL [Concomitant]
     Dosage: 160/45  2 SPRAYS IN EACH NOSTRIL 2 TIMES A DAY IN AM + PM
  6. ALLEGRA [Concomitant]
     Dosage: IN THE MORNING
  7. CARVEDILOL [Concomitant]
     Dosage: EVERY EVENING
  8. CYMBALTA [Concomitant]
     Dosage: IN THE EVENING
  9. SIMVASTATIN [Concomitant]
     Dosage: IN THE EVENING
  10. AZELASTINE HYDROCHLORIDE [Concomitant]
     Dosage: 2 SPRAYS IN EACH NOSTRIL TWICE A DAY DOSE:0.15 UNIT(S)
  11. PEPCID [Concomitant]
  12. OSCAL D [Concomitant]
     Dosage: ONCE DAILY IN THE MORNING
  13. ACETYLSALICYLIC ACID [Concomitant]
     Dosage: IN THE MORNING
  14. AVAPRO [Concomitant]
     Dosage: IN THE MORNING
  15. TRAZODONE [Concomitant]
  16. ZYRTEC [Concomitant]
  17. RESTASIS [Concomitant]
     Dosage: 2 DROPS IN EACH EYE TWICE A DAY

REACTIONS (2)
  - Cataract [Unknown]
  - Visual impairment [Unknown]
